FAERS Safety Report 15251352 (Version 5)
Quarter: 2019Q1

REPORT INFORMATION
  Report Type: Spontaneous
  Country: US (occurrence: US)
  Receive Date: 20180807
  Receipt Date: 20190321
  Transmission Date: 20190417
  Serious: Yes (Disabling)
  Sender: FDA-Public Use
  Company Number: US-SA-2018SA208290

PATIENT
  Age: 82 Year
  Sex: Female

DRUGS (2)
  1. ALIROCUMAB PREFILLED PEN [Suspect]
     Active Substance: ALIROCUMAB
     Indication: BLOOD CHOLESTEROL INCREASED
     Dosage: UNK UNK, QOW
     Dates: start: 20180526, end: 20190119
  2. PRALUENT [Suspect]
     Active Substance: ALIROCUMAB
     Indication: BLOOD CHOLESTEROL INCREASED
     Dosage: 75 MG, QOW
     Route: 058
     Dates: start: 20180502, end: 20190114

REACTIONS (7)
  - Gait disturbance [Unknown]
  - Bone pain [Unknown]
  - Renal disorder [Unknown]
  - Abdominal discomfort [Unknown]
  - Dysuria [Unknown]
  - Muscle spasms [Unknown]
  - Pain [Unknown]
